FAERS Safety Report 4359424-3 (Version None)
Quarter: 2004Q2

REPORT INFORMATION
  Report Type: 
  Country: None (occurrence: None)
  Receive Date: 20040514
  Receipt Date: 20040514
  Transmission Date: 20050107
  Serious: Yes (Hospitalization)
  Sender: FDA-Public Use
  Company Number: None

PATIENT
  Age: 55 Year
  Sex: Male

DRUGS (5)
  1. INDOMETHACIN [Concomitant]
     Indication: OSTEOARTHRITIS
     Dosage: 25 MG TID
     Dates: start: 20000301
  2. SPIRONOLACTONE [Concomitant]
  3. LORTAB [Concomitant]
  4. DSS [Concomitant]
  5. INDOMETHACIN [Suspect]

REACTIONS (1)
  - GASTRIC ULCER [None]
